FAERS Safety Report 5360897-8 (Version None)
Quarter: 2007Q2

REPORT INFORMATION
  Report Type: 
  Country: None (occurrence: None)
  Receive Date: 20070618
  Receipt Date: 20070608
  Transmission Date: 20071010
  Serious: Yes (Hospitalization)
  Sender: FDA-Public Use
  Company Number: FR-ABBOTT-07P-056-0370907-00

PATIENT
  Age: 46 Year
  Sex: Male
  Weight: 82 kg

DRUGS (6)
  1. NORVIR [Suspect]
     Indication: ACQUIRED IMMUNODEFICIENCY SYNDROME
     Route: 048
     Dates: start: 20070424
  2. BUPRENORPHINE CHLORHYDRATE [Suspect]
     Indication: DRUG INTERACTION POTENTIATION
     Route: 042
     Dates: end: 20070424
  3. LAMIVUDINE [Suspect]
     Indication: ACQUIRED IMMUNODEFICIENCY SYNDROME
     Route: 048
     Dates: start: 20070426
  4. TENOFOVIR DISOPROXIL [Suspect]
     Indication: ACQUIRED IMMUNODEFICIENCY SYNDROME
     Route: 048
     Dates: start: 20070426
  5. ATAZANAVIR SULFATE [Suspect]
     Indication: ACQUIRED IMMUNODEFICIENCY SYNDROME
     Route: 048
     Dates: start: 20070426
  6. BACTRIM [Suspect]
     Indication: ACQUIRED IMMUNODEFICIENCY SYNDROME
     Route: 048

REACTIONS (6)
  - INJECTION SITE DISCOLOURATION [None]
  - INJECTION SITE EROSION [None]
  - INJECTION SITE PUSTULE [None]
  - INTENTIONAL DRUG MISUSE [None]
  - OEDEMA PERIPHERAL [None]
  - SKIN ULCER [None]
